FAERS Safety Report 4963432-9 (Version None)
Quarter: 2006Q2

REPORT INFORMATION
  Report Type: 
  Country: None (occurrence: None)
  Receive Date: 20060405
  Receipt Date: 20060324
  Transmission Date: 20061013
  Serious: Yes (Hospitalization, Other)
  Sender: FDA-Public Use
  Company Number: US-BRISTOL-MYERS SQUIBB COMPANY-13332044

PATIENT
  Age: 35 Year
  Sex: Male

DRUGS (4)
  1. SUSTIVA [Suspect]
     Indication: HIV INFECTION
     Dates: start: 20010401
  2. CRIXIVAN [Suspect]
     Indication: HIV INFECTION
     Route: 048
     Dates: start: 20010401, end: 20020401
  3. LAMIVUDINE + ZIDOVUDINE [Suspect]
     Indication: HIV INFECTION
     Dates: start: 20010401, end: 20010101
  4. LAMIVUDINE [Suspect]
     Indication: HIV INFECTION
     Dates: start: 20010101

REACTIONS (11)
  - EXTRADURAL ABSCESS [None]
  - FALL [None]
  - IMMUNE RECONSTITUTION SYNDROME [None]
  - INTERVERTEBRAL DISC DISORDER [None]
  - MYCOBACTERIUM AVIUM COMPLEX IMMUNE RESTORATION DISEASE [None]
  - NEPHROLITHIASIS [None]
  - NEUROPATHY PERIPHERAL [None]
  - OSTEOMYELITIS [None]
  - PSOAS ABSCESS [None]
  - SPINAL CORD COMPRESSION [None]
  - SPONDYLITIS [None]
